FAERS Safety Report 24764679 (Version 1)
Quarter: 2024Q4

REPORT INFORMATION
  Report Type: Report from Study
  Country: CA (occurrence: CA)
  Receive Date: 20241223
  Receipt Date: 20241223
  Transmission Date: 20250114
  Serious: Yes (Other)
  Sender: ALEXION PHARMACEUTICALS
  Company Number: CA-AstraZeneca-CH-00769112A

PATIENT

DRUGS (8)
  1. TEZEPELUMAB [Suspect]
     Active Substance: TEZEPELUMAB
     Indication: Asthma
  2. TEZEPELUMAB [Suspect]
     Active Substance: TEZEPELUMAB
     Route: 058
  3. TEZEPELUMAB [Suspect]
     Active Substance: TEZEPELUMAB
  4. TEZEPELUMAB [Suspect]
     Active Substance: TEZEPELUMAB
     Route: 058
  5. SPIRIVA RESPIMAT [Concomitant]
     Active Substance: TIOTROPIUM BROMIDE
     Dosage: 2.5 MICROGRAM, QD
     Route: 065
  6. SPIRIVA RESPIMAT [Concomitant]
     Active Substance: TIOTROPIUM BROMIDE
     Dosage: 2.5 MICROGRAM, QD
     Route: 065
  7. VENTOLIN [Concomitant]
     Active Substance: ALBUTEROL SULFATE
     Dosage: 100 MICROGRAM, PRN
  8. ZENHALE [Concomitant]
     Active Substance: FORMOTEROL FUMARATE\MOMETASONE FUROATE
     Dosage: 2 DOSAGE FORM, BID

REACTIONS (3)
  - Gastrointestinal disorder [Unknown]
  - Abdominal pain upper [Recovered/Resolved]
  - Inappropriate schedule of product administration [Unknown]
